FAERS Safety Report 4920610-2 (Version None)
Quarter: 2006Q1

REPORT INFORMATION
  Report Type: 
  Country: None (occurrence: None)
  Receive Date: 20060223
  Receipt Date: 20060213
  Transmission Date: 20060701
  Serious: Yes (Hospitalization)
  Sender: FDA-Public Use
  Company Number: AU-ROCHE-435941

PATIENT
  Age: 61 Year
  Sex: Female
  Weight: 60 kg

DRUGS (15)
  1. MYCOPHENOLATE MOFETIL [Suspect]
     Indication: DRUG USE FOR UNKNOWN INDICATION
     Route: 065
  2. CYCLOSPORINE [Suspect]
     Indication: DRUG USE FOR UNKNOWN INDICATION
     Route: 065
  3. OMEPRAZOLE [Suspect]
     Indication: DRUG USE FOR UNKNOWN INDICATION
     Route: 065
  4. METHYLDOPA [Suspect]
     Route: 048
     Dates: end: 20050612
  5. ZOLEDRONIC ACID [Suspect]
     Indication: BONE DISORDER
     Route: 042
     Dates: start: 20050601
  6. INDAPAMIDE [Concomitant]
  7. ITRACONAZOLE [Concomitant]
     Indication: ASPERGILLOSIS
  8. PREDNISOLONE [Concomitant]
     Dates: start: 20000215
  9. IRBESARTAN [Concomitant]
  10. PRAVASTATIN SODIUM [Concomitant]
  11. CLARITHROMYCIN [Concomitant]
  12. MAGMIN [Concomitant]
  13. BACTRIM DS [Concomitant]
     Indication: PROPHYLAXIS
  14. CALTRATE + VITAMIN D [Concomitant]
     Indication: BONE DISORDER
  15. PREMARIN [Concomitant]
     Indication: MENOPAUSAL SYMPTOMS

REACTIONS (7)
  - CHROMATURIA [None]
  - FLANK PAIN [None]
  - LETHARGY [None]
  - MALAISE [None]
  - NAUSEA [None]
  - OLIGURIA [None]
  - RENAL FAILURE ACUTE [None]
